FAERS Safety Report 9689251 (Version 2)
Quarter: 2013Q4

REPORT INFORMATION
  Report Type: Report from Study
  Country: US (occurrence: US)
  Receive Date: 20131114
  Receipt Date: 20131114
  Transmission Date: 20140711
  Serious: Yes (Hospitalization, Other)
  Sender: FDA-Public Use
  Company Number: US-GILEAD-2013-0076512

PATIENT
  Age: 54 Year
  Sex: Female
  Weight: 60 kg

DRUGS (19)
  1. SOFOSBUVIR [Suspect]
     Indication: HEPATITIS C
     Dosage: 400 MG, QD
     Route: 048
     Dates: start: 20121113, end: 20130502
  2. RIBAVIRIN [Suspect]
     Indication: HEPATITIS C
     Dosage: 1000 MG, QD
     Route: 048
     Dates: start: 20121113, end: 20130502
  3. TRUVADA [Suspect]
     Indication: HIV INFECTION
     Dosage: 1 DF, QD
  4. ATAZANAVIR [Suspect]
     Indication: HIV INFECTION
     Dosage: 300 MG, QD
     Route: 048
  5. RITONAVIR [Suspect]
     Indication: HIV INFECTION
     Dosage: 100 MG, QD
     Route: 048
  6. ALBUTEROL                          /00139501/ [Concomitant]
     Indication: ASTHMA
     Dosage: UNK
     Dates: start: 20120326
  7. CARISOPRODOL [Concomitant]
     Indication: MUSCLE SPASMS
     Dosage: UNK
     Dates: start: 20100923
  8. NORCO [Concomitant]
     Indication: INTERVERTEBRAL DISC DISORDER
     Dosage: UNK
     Dates: start: 20100629
  9. LEVOTHYROXINE [Concomitant]
     Indication: HYPOTHYROIDISM
     Dosage: UNK
     Dates: start: 1997
  10. ATIVAN [Concomitant]
     Indication: ANXIETY
     Dosage: UNK
     Dates: start: 20090528
  11. MIRTAZAPINE [Concomitant]
     Indication: DEPRESSION
     Dosage: UNK
     Dates: start: 20111215
  12. NEOSPORIN                          /00038301/ [Concomitant]
  13. OMEPRAZOLE [Concomitant]
     Indication: ABDOMINAL PAIN UPPER
     Dosage: UNK
     Dates: start: 20120412
  14. OXYCODONE [Concomitant]
     Indication: INTERVERTEBRAL DISC DISORDER
     Dosage: UNK
     Dates: start: 20120530
  15. OXYCONTIN [Concomitant]
  16. PROCHLORPERAZINE [Concomitant]
     Indication: NAUSEA
     Dosage: UNK
     Dates: start: 20090211
  17. COLACE [Concomitant]
     Indication: CONSTIPATION
     Dosage: UNK
     Dates: start: 20121110
  18. HYDROCORTISONE [Concomitant]
     Indication: RASH
     Dosage: UNK
     Dates: start: 20090716
  19. OLOPATADINE [Concomitant]
     Indication: EYE PAIN
     Dosage: UNK
     Dates: start: 20100923

REACTIONS (3)
  - Pneumonia [Recovered/Resolved]
  - Chronic obstructive pulmonary disease [Recovered/Resolved]
  - Hypersensitivity vasculitis [Recovered/Resolved]
